FAERS Safety Report 7721496-3 (Version None)
Quarter: 2011Q3

REPORT INFORMATION
  Report Type: 
  Country: None (occurrence: None)
  Receive Date: 20110831
  Receipt Date: 20110824
  Transmission Date: 20111222
  Serious: Yes (Hospitalization, Other)
  Sender: FDA-Public Use
  Company Number: US-BAYER-2011-040596

PATIENT
  Age: 20 Year
  Sex: Female
  Weight: 83.9 kg

DRUGS (12)
  1. TYLENOL W/ CODEINE NO. 3 [Concomitant]
     Indication: PAIN
     Dosage: UNK
     Route: 048
     Dates: start: 20090818
  2. BISMUTH SUBSALICYLATE [Concomitant]
  3. ALLEGRA-D 12 HOUR [Concomitant]
     Indication: RHINITIS ALLERGIC
     Dosage: DAILY DOSE 180 MG
     Route: 048
     Dates: start: 20060101
  4. ADVAIR DISKUS 100/50 [Concomitant]
  5. IBUPROFEN [Concomitant]
     Indication: DYSMENORRHOEA
     Dosage: ONE TABLET DAILY
     Route: 048
     Dates: start: 20080801
  6. ANTIBIOTICS [Concomitant]
  7. PRILOSEC [Concomitant]
  8. PEPCID [Concomitant]
  9. DROSPIRENONE AND ETHINYL ESTRADIOL [Suspect]
     Indication: PREMENSTRUAL SYNDROME
     Dosage: UNK
     Dates: start: 20050801, end: 20100101
  10. OMEPRAZOLE [Concomitant]
     Dosage: DAILY DOSE 20 MG
     Route: 048
     Dates: start: 20090812
  11. MORPHINE [Concomitant]
  12. YASMIN [Suspect]
     Indication: PREMENSTRUAL SYNDROME
     Dosage: UNK
     Dates: start: 20050801, end: 20100101

REACTIONS (4)
  - INJURY [None]
  - GALLBLADDER DISORDER [None]
  - CHOLELITHIASIS [None]
  - CHOLECYSTITIS CHRONIC [None]
